FAERS Safety Report 4753698-2 (Version None)
Quarter: 2005Q3

REPORT INFORMATION
  Report Type: 
  Country: None (occurrence: None)
  Receive Date: 20050824
  Receipt Date: 20050816
  Transmission Date: 20060218
  Serious: Yes (Other)
  Sender: FDA-Public Use
  Company Number: 2005AL002292

PATIENT
  Age: 23 Month
  Sex: Male

DRUGS (1)
  1. SERAX [Suspect]
     Dosage: PO
     Route: 048
     Dates: start: 20050601, end: 20050601

REACTIONS (5)
  - ACCIDENTAL DRUG INTAKE BY CHILD [None]
  - ACCIDENTAL OVERDOSE [None]
  - BALANCE DISORDER [None]
  - COORDINATION ABNORMAL [None]
  - WRONG DRUG ADMINISTERED [None]
